FAERS Safety Report 6752890-5 (Version None)
Quarter: 2010Q2

REPORT INFORMATION
  Report Type: 
  Country: None (occurrence: None)
  Receive Date: 20100602
  Receipt Date: 20100602
  Transmission Date: 20101027
  Serious: No
  Sender: FDA-Public Use
  Company Number: None

PATIENT
  Age: 50 Year
  Sex: Female
  Weight: 50.8029 kg

DRUGS (4)
  1. CYMBALTA [Suspect]
     Indication: FACIAL PAIN
     Dosage: 1 DAILY PO
     Route: 048
     Dates: start: 20100423, end: 20100504
  2. CYMBALTA [Suspect]
     Indication: NERVE ROOT COMPRESSION
     Dosage: 1 DAILY PO
     Route: 048
     Dates: start: 20100423, end: 20100504
  3. CYMBALTA [Suspect]
     Indication: SPINAL OSTEOARTHRITIS
     Dosage: 1 DAILY PO
     Route: 048
     Dates: start: 20100423, end: 20100504
  4. CYMBALTA [Suspect]
     Dosage: 1 DAILY PO
     Route: 048
     Dates: start: 20100505, end: 20100511

REACTIONS (17)
  - ASTHENIA [None]
  - DECREASED APPETITE [None]
  - DIZZINESS POSTURAL [None]
  - DYSPHONIA [None]
  - FATIGUE [None]
  - GAIT DISTURBANCE [None]
  - HEADACHE [None]
  - LETHARGY [None]
  - MEMORY IMPAIRMENT [None]
  - MENTAL IMPAIRMENT [None]
  - MOBILITY DECREASED [None]
  - NAUSEA [None]
  - NO THERAPEUTIC RESPONSE [None]
  - PALPITATIONS [None]
  - SOMNOLENCE [None]
  - TINNITUS [None]
  - VERTIGO [None]
